FAERS Safety Report 7510176-5 (Version None)
Quarter: 2011Q2

REPORT INFORMATION
  Report Type: 
  Country: None (occurrence: None)
  Receive Date: 20110527
  Receipt Date: 20110525
  Transmission Date: 20111010
  Serious: Yes (Other)
  Sender: FDA-Public Use
  Company Number: FR-ABBOTT-11P-056-0722718-00

PATIENT
  Sex: Female
  Weight: 60 kg

DRUGS (3)
  1. MILNACIPRAN [Concomitant]
     Indication: DEPRESSION
     Route: 048
     Dates: start: 20100208
  2. HUMIRA [Suspect]
     Indication: ARTHRITIS
  3. HUMIRA [Suspect]
     Route: 058
     Dates: start: 20101130

REACTIONS (4)
  - IRRITABILITY [None]
  - ANXIETY [None]
  - DEPRESSION [None]
  - INSOMNIA [None]
